FAERS Safety Report 8796827 (Version 1)
Quarter: 2012Q4

REPORT INFORMATION
  Report Type: 
  Country: AR (occurrence: AR)
  Receive Date: 20120917
  Receipt Date: 20120917
  Transmission Date: 20130627
  Serious: Yes (Other)
  Sender: FDA-Public Use
  Company Number: AR-ROCHE-1127945

PATIENT
  Age: 79 Year
  Sex: Female

DRUGS (1)
  1. XOLAIR [Suspect]
     Indication: ASTHMA
     Route: 065
     Dates: start: 2001

REACTIONS (2)
  - Hand fracture [Not Recovered/Not Resolved]
  - Fall [Not Recovered/Not Resolved]
